FAERS Safety Report 21422692 (Version 3)
Quarter: 2023Q1

REPORT INFORMATION
  Report Type: Report from Study
  Country: US (occurrence: US)
  Receive Date: 20221007
  Receipt Date: 20230119
  Transmission Date: 20230418
  Serious: Yes (Hospitalization, Other)
  Sender: FDA-Public Use
  Company Number: US-ABBVIE-4141860

PATIENT
  Age: 75 Year
  Sex: Male
  Weight: 146 kg

DRUGS (5)
  1. VENCLEXTA [Suspect]
     Active Substance: VENETOCLAX
     Indication: Acute myeloid leukaemia
     Route: 048
  2. VENCLEXTA [Suspect]
     Active Substance: VENETOCLAX
     Indication: Acute myeloid leukaemia
     Route: 048
     Dates: end: 20221004
  3. VENCLEXTA [Suspect]
     Active Substance: VENETOCLAX
     Indication: Acute myeloid leukaemia
     Route: 048
  4. AZACITIDINE [Concomitant]
     Active Substance: AZACITIDINE
     Indication: Product used for unknown indication
     Dosage: 11 CYCLES
  5. DECITABINE [Concomitant]
     Active Substance: DECITABINE
     Indication: Product used for unknown indication

REACTIONS (19)
  - Haemoglobin abnormal [Unknown]
  - Iron deficiency anaemia [Unknown]
  - Fatigue [Unknown]
  - Dyspnoea [Unknown]
  - Hypersplenism [Unknown]
  - Loss of consciousness [Unknown]
  - Abdominal pain [Unknown]
  - Tumour lysis syndrome [Unknown]
  - Myeloproliferative neoplasm [Unknown]
  - Chronic kidney disease [Unknown]
  - Renal injury [Unknown]
  - Splenic injury [Unknown]
  - Transfusion [Unknown]
  - Liver injury [Unknown]
  - Overlap syndrome [Unknown]
  - Pain [Unknown]
  - Asthenia [Unknown]
  - Decreased appetite [Unknown]
  - Somnolence [Unknown]

NARRATIVE: CASE EVENT DATE: 20221004
